FAERS Safety Report 7442420-7 (Version None)
Quarter: 2011Q2

REPORT INFORMATION
  Report Type: 
  Country: None (occurrence: None)
  Receive Date: 20110428
  Receipt Date: 20110420
  Transmission Date: 20111010
  Serious: Yes (Hospitalization)
  Sender: FDA-Public Use
  Company Number: US-ROCHE-771843

PATIENT
  Sex: Female
  Weight: 52.1 kg

DRUGS (27)
  1. RIBAVIRIN [Suspect]
     Dosage: LAST DOSE:13 APR 2011, TEMPORARILY HELD
     Route: 048
     Dates: start: 20100713, end: 20110414
  2. CODEINE SUL TAB [Concomitant]
     Indication: PAIN
     Dosage: FREQUENCY:1-2 TABLETS EVERY 6 HOURS,
  3. ACETAMINOFEN [Concomitant]
     Indication: PAIN
     Dosage: 5 DAYS, TABLET NAME ACETAMINOPHEN-CODEINE
  4. NITAZOXANIDE [Suspect]
     Route: 048
  5. TRUVADA [Concomitant]
     Dosage: QD, DURATION: 9 MNTH, LAST DOSE: 08 SEP 2010, 30 DAY
     Route: 048
  6. PROCRIT [Concomitant]
     Dosage: DURATION: 3 WEEK, LAST DOSE: 07 SEP 2010
     Route: 042
  7. HYDROCORTISONE [Concomitant]
  8. IBUPROFEN [Concomitant]
     Indication: PAIN
     Route: 048
  9. PEGINTERFERON ALFA-2A [Suspect]
     Dosage: LAST DOSE: 29 DECEMBER 2010. TEMPORARILY HELD.
     Route: 058
     Dates: start: 20100713
  10. NITAZOXANIDE [Suspect]
     Dosage: LAST DOSE: 13 APR 2011, TEMPORARILY HELD
     Route: 048
     Dates: start: 20100610, end: 20110414
  11. CALCIUM/COLECALCIFEROL [Concomitant]
     Indication: OSTEOPENIA
     Dosage: DRUG NAME: CALCIUM-VIT D, DURATION: 4 MNTHS, LAST DOSE: 08 SEP 2010
     Route: 048
  12. CELEXA [Concomitant]
     Indication: DEPRESSION
     Dosage: QD, DURATION: 5 YR, LAST DOSE: 08 SEP 2010, 30 DAYS
     Route: 048
  13. CITALOPRAM [Concomitant]
     Route: 048
  14. EFAVIRENZ [Concomitant]
     Dosage: QD, DURATION: 9 MNTH, LAST DOSE: 08 SEP 2010
     Route: 048
  15. TRAZODONE HCL [Concomitant]
     Indication: SOMNOLENCE
     Dosage: FREQUENCY:1-2 PRN OR AT BEDTIME
  16. ENSURE PLUS [Concomitant]
     Dosage: FREQUENCY:1 CAN TWICE DAILY
  17. LOTRIMIN AF [Concomitant]
     Indication: RASH
     Dosage: FREQUENCY:DAILY, PRN
  18. IMODIUM [Concomitant]
     Dosage: AS NEEDED
     Route: 048
  19. ABILIFY [Concomitant]
     Indication: DEPRESSION
     Dosage: QD, DURATION: 1 YEAR, LAST DOSE: 08 SEP 2010, FOR 30 DAYS
     Route: 048
  20. PROVIGIL [Concomitant]
     Indication: FATIGUE
     Dosage: QD, DURATION: 1 MONTH, LAST DOSE: 08 SEP 2010, 30 DAYS
     Route: 048
  21. VITAMIN D [Concomitant]
  22. ARIPIPRAZOLE [Concomitant]
     Route: 048
  23. PEGINTERFERON ALFA-2A [Suspect]
     Dosage: LAST DOSE: 13 APR 2011, TEMPORARILY HELD
     Route: 058
     Dates: start: 20110119, end: 20110414
  24. NEUPOGEN [Concomitant]
     Indication: NEUTROPENIA
     Dosage: DURATION: 5 WEEK, LAST DOSE: 07 SEP 2010
     Route: 058
  25. NAPROXEN [Concomitant]
     Indication: PAIN
     Dosage: FREQUENCY:PAIN
  26. PROCHLORPERAZINE MALEATE [Concomitant]
     Indication: NAUSEA
  27. BACTROBAN [Concomitant]
     Dosage: APPLYTOPICALLY  FOR 12 HOURS

REACTIONS (1)
  - HAEMATEMESIS [None]
